FAERS Safety Report 14704501 (Version 2)
Quarter: 2018Q2

REPORT INFORMATION
  Report Type: Spontaneous
  Country: PT (occurrence: PT)
  Receive Date: 20180402
  Receipt Date: 20180404
  Transmission Date: 20180711
  Serious: Yes (Other)
  Sender: FDA-Public Use
  Company Number: PT-PFIZER INC-2018131655

PATIENT
  Age: 32 Year
  Sex: Male

DRUGS (1)
  1. METHYLPREDNISOLONE. [Suspect]
     Active Substance: METHYLPREDNISOLONE
     Indication: RELAPSING-REMITTING MULTIPLE SCLEROSIS
     Dosage: HIGH-DOSE

REACTIONS (1)
  - Autoimmune hepatitis [Recovered/Resolved]
